FAERS Safety Report 5810447-4 (Version None)
Quarter: 2008Q3

REPORT INFORMATION
  Report Type: 
  Country: None (occurrence: None)
  Receive Date: 20080708
  Receipt Date: 20080115
  Transmission Date: 20090109
  Serious: Yes (Hospitalization)
  Sender: FDA-Public Use
  Company Number: SPV1-2008-00048

PATIENT
  Age: 32 Year
  Sex: Male

DRUGS (2)
  1. PENTASA [Suspect]
     Indication: COLITIS ULCERATIVE
     Dosage: 800 MG, 3X/DAY:TID
  2. INDOMETHACIN /00003801/ (INDOMETACIN) [Concomitant]

REACTIONS (1)
  - PERICARDITIS [None]
